FAERS Safety Report 7552638-0 (Version None)
Quarter: 2011Q2

REPORT INFORMATION
  Report Type: 
  Country: None (occurrence: None)
  Receive Date: 20110616
  Receipt Date: 20110606
  Transmission Date: 20111010
  Serious: Yes (Other)
  Sender: FDA-Public Use
  Company Number: GB-UCBSA-034783

PATIENT
  Sex: Male

DRUGS (2)
  1. ALENDRONATE SODIUM [Concomitant]
  2. KEPPRA [Suspect]
     Indication: EPILEPSY
     Dates: end: 20080101

REACTIONS (5)
  - MUSCULAR WEAKNESS [None]
  - EPILEPSY [None]
  - MUSCLE ATROPHY [None]
  - LOSS OF CONSCIOUSNESS [None]
  - BALANCE DISORDER [None]
